FAERS Safety Report 10279332 (Version 2)
Quarter: 2014Q3

REPORT INFORMATION
  Report Type: Spontaneous
  Country: ZA (occurrence: ZA)
  Receive Date: 20140707
  Receipt Date: 20140710
  Transmission Date: 20150326
  Serious: Yes (Hospitalization)
  Sender: FDA-Public Use
  Company Number: ZA-AMGEN-ZAFSP2014050010

PATIENT
  Age: 33 Year
  Sex: Female

DRUGS (3)
  1. TRAMCET [Concomitant]
     Active Substance: ACETAMINOPHEN\TRAMADOL
     Indication: PAIN
     Dosage: 2 MG, 2X/DAY (2 TABLETS)
     Route: 048
     Dates: start: 2012
  2. ENBREL [Suspect]
     Active Substance: ETANERCEPT
     Indication: ANKYLOSING SPONDYLITIS
     Dosage: 50 MG, WEEKLY
     Route: 058
     Dates: start: 20121114, end: 20140609
  3. TOPALEX [Concomitant]
     Active Substance: TOPIRAMATE
     Indication: CONVULSION
     Dosage: 150 MG, DAILY
     Route: 048
     Dates: start: 201403, end: 20140622

REACTIONS (3)
  - Convulsion [Not Recovered/Not Resolved]
  - Depressed mood [Not Recovered/Not Resolved]
  - Activities of daily living impaired [Not Recovered/Not Resolved]

NARRATIVE: CASE EVENT DATE: 2014
